FAERS Safety Report 5984855-5 (Version None)
Quarter: 2008Q4

REPORT INFORMATION
  Report Type: 
  Country: None (occurrence: None)
  Receive Date: 20081202
  Receipt Date: 20081121
  Transmission Date: 20090506
  Serious: Yes (Death)
  Sender: FDA-Public Use
  Company Number: TCI2008A05768

PATIENT
  Age: 73 Year
  Sex: Male

DRUGS (2)
  1. LANSOPRAZOLE [Suspect]
     Indication: GASTROINTESTINAL HAEMORRHAGE
     Dosage: 15 MG (15 MG, 1 IN 1 D)
     Route: 048
     Dates: start: 20081030, end: 20081105
  2. LASIX [Suspect]
     Indication: RENAL FAILURE CHRONIC
     Dosage: 40 MG (20 MG, 2 IN 1 D)
     Route: 048
     Dates: start: 20080903, end: 20081105

REACTIONS (5)
  - ACUTE RESPIRATORY DISTRESS SYNDROME [None]
  - DYSPHAGIA [None]
  - PNEUMONIA [None]
  - RESPIRATORY FAILURE [None]
  - THROMBOCYTOPENIA [None]
